FAERS Safety Report 13853797 (Version 1)
Quarter: 2017Q3

REPORT INFORMATION
  Report Type: Spontaneous
  Country: US (occurrence: US)
  Receive Date: 20170810
  Receipt Date: 20170810
  Transmission Date: 20171127
  Serious: No
  Sender: FDA-Public Use
  Company Number: None

PATIENT
  Age: 69 Year
  Sex: Female

DRUGS (1)
  1. ATRIPLA [Suspect]
     Active Substance: EFAVIRENZ\EMTRICITABINE\TENOFOVIR DISOPROXIL FUMARATE

REACTIONS (5)
  - Constipation [None]
  - Flatulence [None]
  - Diarrhoea [None]
  - Dyspepsia [None]
  - Tongue discomfort [None]

NARRATIVE: CASE EVENT DATE: 20161110
